FAERS Safety Report 8650229 (Version 3)
Quarter: 2012Q4

REPORT INFORMATION
  Report Type: Spontaneous
  Country: AU (occurrence: None)
  Receive Date: 20120621
  Receipt Date: 20121115
  Transmission Date: 20130627
  Serious: Yes (Death, Hospitalization)
  Sender: FDA-Public Use
  Company Number: 2012MPI00258

PATIENT
  Age: 48 Year
  Sex: Female
  Weight: 74 kg

DRUGS (1)
  1. BRENTUXIMAB VEDOTIN [Suspect]
     Indication: PRODUCT USED FOR UNKNOWN INDICATION
     Dosage: qcycle
     Route: 042
     Dates: start: 20110921, end: 20111118

REACTIONS (19)
  - Pulmonary veno-occlusive disease [None]
  - Shock [None]
  - Right ventricular failure [None]
  - Ischaemic hepatitis [None]
  - Renal failure [None]
  - Atrial fibrillation [None]
  - Stem cell transplant [None]
  - Coagulopathy [None]
  - Pulmonary hypertension [None]
  - Jaundice [None]
  - Needle track marks [None]
  - Contusion [None]
  - Idiopathic pneumonia syndrome [None]
  - Respiratory failure [None]
  - Hypotension [None]
  - Generalised oedema [None]
  - Ascites [None]
  - Pleural effusion [None]
  - Pleural fibrosis [None]
